FAERS Safety Report 10976232 (Version 2)
Quarter: 2015Q2

REPORT INFORMATION
  Report Type: Spontaneous
  Country: US (occurrence: US)
  Receive Date: 20150401
  Receipt Date: 20150525
  Transmission Date: 20150821
  Serious: Yes (Other)
  Sender: FDA-Public Use
  Company Number: US-JNJFOC-20120814103

PATIENT
  Age: 22 Year
  Sex: Female

DRUGS (1)
  1. RISPERDAL [Suspect]
     Active Substance: RISPERIDONE
     Indication: BIPOLAR DISORDER
     Dosage: 2 OR 3 MG DOSAGE
     Route: 048
     Dates: start: 201206

REACTIONS (2)
  - Blood prolactin increased [Unknown]
  - Breast discharge [Unknown]

NARRATIVE: CASE EVENT DATE: 201208
